FAERS Safety Report 6915188-8 (Version None)
Quarter: 2010Q3

REPORT INFORMATION
  Report Type: 
  Country: None (occurrence: None)
  Receive Date: 20100805
  Receipt Date: 20100805
  Transmission Date: 20110219
  Serious: Yes (Hospitalization)
  Sender: FDA-Public Use
  Company Number: None

PATIENT
  Sex: Male
  Weight: 94.8 kg

DRUGS (2)
  1. CYTARABINE [Suspect]
     Dosage: 2860 MG
     Dates: end: 20100723
  2. DAUNORUBICIN HCL [Suspect]
     Dosage: 396 MG
     Dates: end: 20100718

REACTIONS (6)
  - CEREBRAL HAEMORRHAGE [None]
  - INTRACRANIAL PRESSURE INCREASED [None]
  - INTRAVENTRICULAR HAEMORRHAGE [None]
  - LEUKAEMIC INFILTRATION BRAIN [None]
  - MENTAL STATUS CHANGES [None]
  - SUBARACHNOID HAEMORRHAGE [None]
